FAERS Safety Report 18010345 (Version 1)
Quarter: 2020Q3

REPORT INFORMATION
  Report Type: Spontaneous
  Country: PL (occurrence: PL)
  Receive Date: 20200710
  Receipt Date: 20200710
  Transmission Date: 20201103
  Serious: Yes (Other)
  Sender: FDA-Public Use
  Company Number: PL-PFIZER INC-2020263695

PATIENT
  Age: 68 Year
  Sex: Female
  Weight: 84 kg

DRUGS (2)
  1. SUTENT [Suspect]
     Active Substance: SUNITINIB MALATE
     Indication: RENAL CELL CARCINOMA
     Dosage: 50 MG, 1X/DAY (50 MG PER DAY ? COURSE 1?6)
     Route: 048
  2. SUTENT [Suspect]
     Active Substance: SUNITINIB MALATE
     Dosage: 37.5 MG, 1X/DAY (37.5 MG PER DAY ? COURSE 7?19)
     Route: 048

REACTIONS (20)
  - Hypothyroidism [Unknown]
  - Blood pressure increased [Unknown]
  - Asthenia [Unknown]
  - Stomatitis [Unknown]
  - Chronic kidney disease [Unknown]
  - Thrombocytopenia [Unknown]
  - Hyperthyroidism [Unknown]
  - Pain in extremity [Unknown]
  - Taste disorder [Unknown]
  - Skin burning sensation [Unknown]
  - Fatigue [Unknown]
  - Anaemia [Unknown]
  - Hyperglycaemia [Unknown]
  - Neutropenia [Unknown]
  - Leukopenia [Unknown]
  - Fungal infection [Unknown]
  - Erythema [Unknown]
  - Palmar-plantar erythrodysaesthesia syndrome [Unknown]
  - Bradycardia [Unknown]
  - Oedema peripheral [Unknown]
